FAERS Safety Report 19569970 (Version 3)
Quarter: 2021Q4

REPORT INFORMATION
  Report Type: Spontaneous
  Country: IN (occurrence: IN)
  Receive Date: 20210716
  Receipt Date: 20211109
  Transmission Date: 20220303
  Serious: Yes (Other)
  Sender: FDA-Public Use
  Company Number: IN-PFIZER INC-2021831207

PATIENT
  Age: 62 Year
  Sex: Female
  Weight: 65.3 kg

DRUGS (3)
  1. CRIZOTINIB [Suspect]
     Active Substance: CRIZOTINIB
     Indication: Lung cancer metastatic
     Dosage: 250 MG, 2X/DAY
     Route: 048
     Dates: start: 20201012, end: 202103
  2. PACLITAXEL [Concomitant]
     Active Substance: PACLITAXEL
     Dosage: 85 MG/M2, CYCLIC, D1, WEEKLY
  3. CARBOPLATIN [Concomitant]
     Active Substance: CARBOPLATIN
     Dosage: AUD 1.5, D2, WEEKLY

REACTIONS (8)
  - Sepsis [Unknown]
  - Pericardial effusion [Unknown]
  - Cardiac tamponade [Unknown]
  - Hypokalaemia [Unknown]
  - Mass [Unknown]
  - Pyrexia [Unknown]
  - Iron deficiency [Unknown]
  - Neoplasm progression [Unknown]
